FAERS Safety Report 6962901-X (Version None)
Quarter: 2010Q3

REPORT INFORMATION
  Report Type: 
  Country: None (occurrence: None)
  Receive Date: 20100902
  Receipt Date: 20100729
  Transmission Date: 20110219
  Serious: No
  Sender: FDA-Public Use
  Company Number: US-PFIZER INC-2008084078

PATIENT
  Sex: Female
  Weight: 68.027 kg

DRUGS (2)
  1. XALATAN [Suspect]
     Indication: GLAUCOMA
     Dosage: 1 GTT, IN EACH EYE DAILY
     Route: 047
  2. ADVAIR DISKUS 100/50 [Concomitant]
     Indication: ASTHMA
     Dosage: 100 MCG/50 MCG DAILY

REACTIONS (3)
  - EYE IRRITATION [None]
  - INCORRECT STORAGE OF DRUG [None]
  - INSOMNIA [None]
